FAERS Safety Report 8791419 (Version 1)
Quarter: 2012Q4

REPORT INFORMATION
  Report Type: Spontaneous
  Country: US (occurrence: None)
  Receive Date: 20120914
  Receipt Date: 20120914
  Transmission Date: 20130627
  Serious: No
  Sender: FDA-Public Use
  Company Number: None

PATIENT
  Age: 69 Year
  Sex: Female
  Weight: 91.63 kg

DRUGS (1)
  1. BRILINTA [Suspect]
     Dosage: 90 mg. 2x/day
     Dates: start: 20120824, end: 20120825

REACTIONS (2)
  - Flatulence [None]
  - Dyspnoea [None]
